FAERS Safety Report 8118348-6 (Version None)
Quarter: 2012Q1

REPORT INFORMATION
  Report Type: 
  Country: None (occurrence: None)
  Receive Date: 20120207
  Receipt Date: 20120202
  Transmission Date: 20120608
  Serious: Yes (Other)
  Sender: FDA-Public Use
  Company Number: US-PFIZER INC-2012029162

PATIENT
  Sex: Male
  Weight: 58.957 kg

DRUGS (1)
  1. VIAGRA [Suspect]
     Indication: LOSS OF LIBIDO
     Dosage: 100 MG, WEEKLY
     Route: 048
     Dates: end: 20120101

REACTIONS (1)
  - HEPATIC CANCER STAGE I [None]
